FAERS Safety Report 5130608-X (Version None)
Quarter: 2006Q4

REPORT INFORMATION
  Report Type: 
  Country: None (occurrence: None)
  Receive Date: 20061018
  Receipt Date: 20061018
  Transmission Date: 20070319
  Serious: Yes (Hospitalization)
  Sender: FDA-Public Use
  Company Number: None

PATIENT
  Sex: Male
  Weight: 93.9 kg

DRUGS (4)
  1. GLEEVEC [Suspect]
     Indication: MIXED OLIGO-ASTROCYTOMA
     Dosage: 500MG PO BID
     Route: 048
     Dates: start: 20060822, end: 20060920
  2. HYDROXYUREA [Suspect]
     Indication: MIXED OLIGO-ASTROCYTOMA
     Dosage: 500MG PO BID
     Route: 048
     Dates: start: 20060822, end: 20060920
  3. DILANTIN [Concomitant]
  4. MOTRIN [Concomitant]

REACTIONS (7)
  - COUGH [None]
  - PHARYNGITIS [None]
  - PYREXIA [None]
  - THROMBOPHLEBITIS SUPERFICIAL [None]
  - THROMBOSIS [None]
  - UPPER RESPIRATORY TRACT INFECTION [None]
  - VENOUS THROMBOSIS [None]
